FAERS Safety Report 23426116 (Version 2)
Quarter: 2024Q1

REPORT INFORMATION
  Report Type: Spontaneous
  Country: GB (occurrence: GB)
  Receive Date: 20240122
  Receipt Date: 20240122
  Transmission Date: 20240409
  Serious: Yes (Other)
  Sender: FDA-Public Use
  Company Number: GB-JNJFOC-20240124393

PATIENT
  Sex: Female

DRUGS (15)
  1. ACETAMINOPHEN [Suspect]
     Active Substance: ACETAMINOPHEN
     Indication: Product used for unknown indication
     Route: 065
  2. BEXSERO [Suspect]
     Active Substance: NEISSERIA MENINGITIDIS GROUP B FHBP FUSION PROTEIN ANTIGEN\NEISSERIA MENINGITIDIS GROUP B NADA PROTE
     Indication: Immunisation
     Dosage: NEISSERIA MENINGITIDIS STRAIN NZ98/254 OUTER MEMBRANE VESICLES, RECOMBINANT PROTEIN 287-953 EX NEISS
     Route: 065
     Dates: start: 20170427, end: 20170427
  3. BEXSERO [Suspect]
     Active Substance: NEISSERIA MENINGITIDIS GROUP B FHBP FUSION PROTEIN ANTIGEN\NEISSERIA MENINGITIDIS GROUP B NADA PROTE
     Indication: Immunisation
     Route: 065
     Dates: start: 20170224, end: 20170224
  4. ROTARIX [Suspect]
     Active Substance: HUMAN ROTAVIRUS A TYPE G1P(8) STRAIN RIX4414 LIVE ANTIGEN
     Indication: Immunisation
     Dosage: ROTAVIRUS/HUMAN ROTAVIRUS RIX 4414 STRAIN LIVE ATTENUATED
     Route: 065
     Dates: start: 20150130, end: 20150130
  5. ROTARIX [Suspect]
     Active Substance: HUMAN ROTAVIRUS A TYPE G1P(8) STRAIN RIX4414 LIVE ANTIGEN
     Indication: Immunisation
     Route: 065
     Dates: start: 20150102, end: 20150102
  6. PEDIACEL [Suspect]
     Active Substance: DIPHTHERIA AND TETANUS TOXOIDS AND ACELLULAR PERTUSSIS ADSORBED, INACTIVATED POLIOVIRUS AND HAEMOPHI
     Indication: Immunisation
     Dosage: POLIOMYELITIS INACTIVATED VIRUS TYPE 3, PERTUSSIS PURIFIED FIMBRIAL AGGLUTINOGENS 2 AND 3, PERTUSSIS
     Route: 065
     Dates: start: 20140102, end: 20140102
  7. PEDIACEL [Suspect]
     Active Substance: DIPHTHERIA AND TETANUS TOXOIDS AND ACELLULAR PERTUSSIS ADSORBED, INACTIVATED POLIOVIRUS AND HAEMOPHI
     Indication: Immunisation
     Route: 065
     Dates: start: 20150130, end: 20150130
  8. PEDIACEL [Suspect]
     Active Substance: DIPHTHERIA AND TETANUS TOXOIDS AND ACELLULAR PERTUSSIS ADSORBED, INACTIVATED POLIOVIRUS AND HAEMOPHI
     Indication: Immunisation
     Route: 065
     Dates: start: 20150306, end: 20150306
  9. REVAXIS [Suspect]
     Active Substance: DIPHTHERIA AND TETANUS TOXOIDS AND POLIOVIRUS VACCINE ANTIGENS
     Indication: Product used for unknown indication
     Dosage: POLIOMYELITIS INACTIVATED VIRUS TYPE 3, DIPHTHERIA TOXOID ADSORBED PURIFIED, POLIOMYELITIS INACTIVAT
     Route: 065
     Dates: start: 20190430, end: 20190430
  10. MEASLES-RUBELLA VIRUS VACCINE, LIVE NOS [Suspect]
     Active Substance: MEASLES-RUBELLA VIRUS VACCINE, LIVE
     Indication: Immunisation
     Dosage: VIRUS RUBELLA, VIRUS MEASLES
     Route: 065
     Dates: start: 20160226, end: 20160226
  11. DIPHTHERIA AND TETANUS TOXOIDS AND ACELLULAR PERTUSSIS ADSORBED, INACT [Suspect]
     Active Substance: DIPHTHERIA AND TETANUS TOXOIDS AND ACELLULAR PERTUSSIS ADSORBED, INACTIVATED POLIOVIRUS AND HAEMOPHI
     Indication: Product used for unknown indication
     Dosage: POLIOMYELITIS INACTIVATED VIRUS TYPE 3, DIPHTHERIA TOXOID, TETANUS TOXOID, PERTUSSIS COMPONENT ACELL
     Route: 064
  12. MENINGOCOCCAL POLYSACCHARIDE VACCINE C NOS [Suspect]
     Active Substance: MENINGOCOCCAL POLYSACCHARIDE VACCINE C\NEISSERIA MENINGITIDIS GROUP C CAPSULAR POLYSACCHARIDE ANTIGE
     Indication: Immunisation
     Route: 065
     Dates: start: 20150130, end: 20150130
  13. VITAMIN K1 [Suspect]
     Active Substance: PHYTONADIONE
     Indication: Product used for unknown indication
     Route: 065
     Dates: start: 20141021, end: 20141021
  14. PREVNAR 13 [Suspect]
     Active Substance: PNEUMOCOCCAL 13-VALENT CONJUGATE VACCINE
     Indication: Immunisation
     Dosage: PNEUMOCOCCAL POLYSACCHARIDE SEROTYPE 19F CONJUGATED TO CRM 197, PNEUMOCOCCAL POLYSACCHARIDE SEROTYPE
     Route: 065
     Dates: start: 20150102, end: 20150102
  15. PREVNAR 13 [Suspect]
     Active Substance: PNEUMOCOCCAL 13-VALENT CONJUGATE VACCINE
     Dosage: PNEUMOCOCCAL POLYSACCHARIDE SEROTYPE 19F CONJUGATED TO CRM 197, PNEUMOCOCCAL POLYSACCHARIDE SEROTYPE
     Route: 065
     Dates: start: 20150306, end: 20150306

REACTIONS (7)
  - Eczema [Not Recovered/Not Resolved]
  - Developmental coordination disorder [Not Recovered/Not Resolved]
  - Autism spectrum disorder [Not Recovered/Not Resolved]
  - Sensory processing disorder [Not Recovered/Not Resolved]
  - Reaction to excipient [Unknown]
  - Foetal exposure during pregnancy [Unknown]
  - Foetal growth restriction [Unknown]
